FAERS Safety Report 18800439 (Version 1)
Quarter: 2021Q1

REPORT INFORMATION
  Report Type: Spontaneous
  Country: US (occurrence: US)
  Receive Date: 20210128
  Receipt Date: 20210128
  Transmission Date: 20210419
  Serious: Yes (Other)
  Sender: FDA-Public Use
  Company Number: US-PURDUE-USA-2020-0201079

PATIENT

DRUGS (1)
  1. OXYCONTIN [Suspect]
     Active Substance: OXYCODONE HYDROCHLORIDE
     Indication: SURGERY
     Dosage: UNK
     Route: 048
     Dates: start: 2009

REACTIONS (6)
  - Cognitive disorder [Unknown]
  - Drug dependence [Unknown]
  - Ill-defined disorder [Unknown]
  - Pain [Unknown]
  - Emotional distress [Unknown]
  - Mental impairment [Unknown]
